FAERS Safety Report 12485000 (Version 1)
Quarter: 2016Q2

REPORT INFORMATION
  Report Type: Spontaneous
  Country: US (occurrence: None)
  Receive Date: 20160620
  Receipt Date: 20160620
  Transmission Date: 20160815
  Serious: Yes (Other)
  Sender: FDA-Public Use
  Company Number: None

PATIENT
  Age: 43 Year
  Sex: Female
  Weight: 77.11 kg

DRUGS (2)
  1. UROXATRAL [Suspect]
     Active Substance: ALFUZOSIN HYDROCHLORIDE
     Indication: NEPHROLITHIASIS
     Dosage: 1 TABLET ONCE A DAY
     Route: 048
     Dates: start: 20160616, end: 20160616
  2. UROXATRAL [Suspect]
     Active Substance: ALFUZOSIN HYDROCHLORIDE
     Indication: URINARY RETENTION
     Dosage: 1 TABLET ONCE A DAY
     Route: 048
     Dates: start: 20160616, end: 20160616

REACTIONS (1)
  - Heart rate increased [None]

NARRATIVE: CASE EVENT DATE: 20160617
